FAERS Safety Report 9748315 (Version 1)
Quarter: 2013Q4

REPORT INFORMATION
  Report Type: Spontaneous
  Country: US (occurrence: US)
  Receive Date: 20131212
  Receipt Date: 20131212
  Transmission Date: 20140711
  Serious: Yes (Other)
  Sender: FDA-Public Use
  Company Number: US-JNJFOC-20131202525

PATIENT
  Age: 23 Year
  Sex: Female

DRUGS (16)
  1. DOXORUBICIN HYDROCHLORIDE [Suspect]
     Indication: BURKITT^S LYMPHOMA
     Dosage: OVER 2 HOURS ON DAY 4
     Route: 042
  2. CYCLOPHOSPHAMIDE [Suspect]
     Indication: BURKITT^S LYMPHOMA
     Dosage: OVER 2 HOURS EVERY 12 HOURS FOR 6??DOSES, ON DAYS 1-3
     Route: 042
  3. MESNA [Suspect]
     Indication: BURKITT^S LYMPHOMA
     Dosage: STARTING 1HR BEFORE CYCLOPHOSPHAMIDE AND CONTINUED FOR 12 HR AFTER LAST DOSE OF CYCLOPHOSPHAMIDE
     Route: 042
  4. VINCRISTINE [Suspect]
     Indication: BURKITT^S LYMPHOMA
     Dosage: PUSH OVER 2-3 MINUTES FOR 2 DOSES ON??DAYS 4 AND 11
     Route: 042
  5. DEXAMETHASONE [Suspect]
     Indication: BURKITT^S LYMPHOMA
     Dosage: 8 DOSES ON DAYS 1-4 AND ON??DAYS 11-14
     Route: 048
  6. DEXAMETHASONE [Suspect]
     Indication: BURKITT^S LYMPHOMA
     Dosage: 8 DOSES ON DAYS 1-4 AND ON??DAYS 11-14
     Route: 042
  7. FILGRASTIM [Suspect]
     Indication: BURKITT^S LYMPHOMA
     Dosage: STARTED 24 HR AFTER THE LAST DOSE OF??CHEMOTHERAPY AND CONTINUED UNTIL THE WBC COUNT IS } 3000/MM3
     Route: 058
  8. FILGRASTIM [Suspect]
     Indication: BURKITT^S LYMPHOMA
     Dosage: STARTED 24 HR AFTER THE LAST DOSE OFCHEMOTHERAPY AND CONTINUED UNTIL THE WBC COUNT IS } 3000/MM3
     Route: 058
  9. FILGRASTIM [Suspect]
     Indication: BURKITT^S LYMPHOMA
     Dosage: STARTED 24 HR AFTER THE LAST DOSE OF??CHEMOTHERAPY AND CONTINUED UNTIL THE WBC COUNT IS } 3000/MM3
     Route: 058
  10. FILGRASTIM [Suspect]
     Indication: BURKITT^S LYMPHOMA
     Dosage: STARTED 24 HR AFTER THE LAST DOSE OFCHEMOTHERAPY AND CONTINUED UNTIL THE WBC COUNT IS } 3000/MM3
     Route: 058
  11. METHOTREXATE [Suspect]
     Indication: BURKITT^S LYMPHOMA
     Dosage: OVER 24 HOURS ON DAY 1
     Route: 042
  12. CYTARABINE [Suspect]
     Indication: BURKITT^S LYMPHOMA
     Dosage: OVER 2 HOURS EVERY 12 HOURS FOR 4 DOSES,??ON DAYS 2-3
     Route: 042
  13. CALCIUM LEUCOVORIN [Suspect]
     Indication: BURKITT^S LYMPHOMA
     Dosage: OVER 20 MINUTES ADMINISTERED 12 HOURS??AFTER MTX INFUSION WAS COMPLETED
     Route: 042
  14. LEUCOVORIN [Suspect]
     Indication: BURKITT^S LYMPHOMA
     Dosage: FOR 8 TOTAL DOSES OR UNTIL BLOOD MTX??CONCENTRATION WAS  LESS THAN 0.1 MMOL/L
     Route: 042
  15. METHOTREXATE [Concomitant]
     Indication: NERVOUS SYSTEM DISORDER
     Dosage: 12 MG PER DOSE VIA LUMBAR PUNCTURE OR??6 MG PER DOSE VIA OMMAYA RESERVOIR
     Route: 037
  16. CYTARABINE [Concomitant]
     Indication: NERVOUS SYSTEM DISORDER
     Dosage: VIA LUMBAR PUNCTURE OR OMMAYA RESERVOIR??ADMINISTERED ON DAY 7 FOR 8 CYCLES
     Route: 037

REACTIONS (5)
  - Abortion spontaneous [Unknown]
  - Exposure during pregnancy [Recovered/Resolved]
  - Paraplegia [Recovered/Resolved]
  - Neuropathy peripheral [Unknown]
  - Depression [Unknown]
